FAERS Safety Report 22594974 (Version 1)
Quarter: 2023Q2

REPORT INFORMATION
  Report Type: Spontaneous
  Country: FR (occurrence: FR)
  Receive Date: 20230613
  Receipt Date: 20230613
  Transmission Date: 20230721
  Serious: Yes (Other)
  Sender: FDA-Public Use
  Company Number: None

PATIENT
  Age: 17 Year
  Sex: Female

DRUGS (2)
  1. XANAX [Suspect]
     Active Substance: ALPRAZOLAM
     Indication: Product used for unknown indication
     Dosage: UP TO 5 TABLETS/DAY
     Route: 048
     Dates: start: 2019, end: 2022
  2. PRAZEPAM [Suspect]
     Active Substance: PRAZEPAM
     Indication: Product used for unknown indication
     Dosage: 10 TABLETS OF 10 MG
     Route: 048
     Dates: start: 20230222, end: 20230222

REACTIONS (3)
  - Toxicity to various agents [Recovered/Resolved]
  - Intentional product misuse [Recovered/Resolved]
  - Drug abuse [Recovered/Resolved]

NARRATIVE: CASE EVENT DATE: 20190101
